FAERS Safety Report 7523413-8 (Version None)
Quarter: 2011Q2

REPORT INFORMATION
  Report Type: 
  Country: None (occurrence: None)
  Receive Date: 20110603
  Receipt Date: 20110526
  Transmission Date: 20111010
  Serious: Yes (Life-Threatening)
  Sender: FDA-Public Use
  Company Number: B0723666A

PATIENT
  Sex: Male
  Weight: 62 kg

DRUGS (3)
  1. LAPATINIB [Suspect]
     Indication: GASTRIC CANCER
     Route: 048
     Dates: start: 20110518
  2. CAPECITABINE [Suspect]
     Indication: GASTRIC CANCER
     Dosage: 1450MG TWICE PER DAY
     Route: 048
     Dates: start: 20110518
  3. OXALIPLATIN [Suspect]
     Indication: GASTRIC CANCER
     Dosage: 222.4MG PER DAY
     Route: 042
     Dates: start: 20110518

REACTIONS (3)
  - MYOCARDIAL INFARCTION [None]
  - PULMONARY EMBOLISM [None]
  - CORONARY ARTERY DISEASE [None]
